FAERS Safety Report 18681573 (Version 1)
Quarter: 2020Q4

REPORT INFORMATION
  Report Type: Spontaneous
  Country: FR (occurrence: FR)
  Receive Date: 20201230
  Receipt Date: 20201230
  Transmission Date: 20210114
  Serious: Yes (Hospitalization)
  Sender: FDA-Public Use
  Company Number: FR-TEVA-2020-FR-1862784

PATIENT
  Age: 87 Year
  Sex: Female
  Weight: 90 kg

DRUGS (15)
  1. ELIQUIS [Suspect]
     Active Substance: APIXABAN
     Indication: ATRIAL FIBRILLATION
     Dosage: UNIT DOSE : 10 MG
     Route: 048
     Dates: end: 20201125
  2. PERINDOPRIL [Concomitant]
     Active Substance: PERINDOPRIL
  3. ATORVASTATINE [Concomitant]
     Active Substance: ATORVASTATIN
  4. ZOPICLONE [Concomitant]
     Active Substance: ZOPICLONE
  5. MOVICOL [Concomitant]
     Active Substance: POLYETHYLENE GLYCOL 3350\POTASSIUM CHLORIDE\SODIUM BICARBONATE\SODIUM CHLORIDE
  6. NEBIVOLOL. [Concomitant]
     Active Substance: NEBIVOLOL
  7. DUROGESIC [Concomitant]
     Active Substance: FENTANYL
  8. NICARDIPINE (CHLORHYDRATE DE) [Concomitant]
     Active Substance: NICARDIPINE HYDROCHLORIDE
  9. INSTANYL [Suspect]
     Active Substance: FENTANYL CITRATE
     Indication: ANALGESIC THERAPY
     Dosage: 1 TO 2 MORNING AND EVENING
     Route: 055
     Dates: start: 202011, end: 20201125
  10. ALLOPURINOL. [Concomitant]
     Active Substance: ALLOPURINOL
  11. ESIDREX [Concomitant]
     Active Substance: HYDROCHLOROTHIAZIDE
  12. PANTOPRAZOLE [Concomitant]
     Active Substance: PANTOPRAZOLE
  13. PAROXETINE (CHLORHYDRATE DE) HEMIHYDRATE [Suspect]
     Active Substance: PAROXETINE HYDROCHLORIDE
     Indication: DEPRESSION
     Dosage: UNIT DOSE : 20 MG
     Route: 048
  14. TOUJEO [Suspect]
     Active Substance: INSULIN GLARGINE
     Indication: DIABETES MELLITUS
     Dosage: UNIT DOSE : 10 IU
     Route: 058
     Dates: end: 20201125
  15. PARACETAMOL [Concomitant]
     Active Substance: ACETAMINOPHEN

REACTIONS (1)
  - Haemarthrosis [Recovering/Resolving]

NARRATIVE: CASE EVENT DATE: 202011
